FAERS Safety Report 4665532-X (Version None)
Quarter: 2005Q2

REPORT INFORMATION
  Report Type: 
  Country: None (occurrence: None)
  Receive Date: 20050517
  Receipt Date: 20050505
  Transmission Date: 20051028
  Serious: Yes (Other)
  Sender: FDA-Public Use
  Company Number: HQWYE595309MAY05

PATIENT
  Age: 10 Year
  Sex: Male

DRUGS (2)
  1. ALAVERT [Suspect]
     Dosage: ORAL
     Route: 048
  2. ADDERALL 10 [Concomitant]

REACTIONS (4)
  - DIZZINESS [None]
  - FLUSHING [None]
  - LOSS OF CONSCIOUSNESS [None]
  - VISION BLURRED [None]
